FAERS Safety Report 7512785-6 (Version None)
Quarter: 2011Q2

REPORT INFORMATION
  Report Type: 
  Country: None (occurrence: None)
  Receive Date: 20110531
  Receipt Date: 20110525
  Transmission Date: 20111010
  Serious: Yes (Hospitalization)
  Sender: FDA-Public Use
  Company Number: B0714930A

PATIENT
  Sex: Male

DRUGS (5)
  1. NORVIR [Suspect]
     Indication: HIV INFECTION
     Dosage: 100MG PER DAY
     Route: 048
     Dates: start: 20090904
  2. PREZISTA [Suspect]
     Indication: HIV INFECTION
     Dosage: 400MG TWICE PER DAY
     Route: 048
     Dates: start: 20090904
  3. ZERIT [Suspect]
     Indication: HIV INFECTION
     Route: 048
     Dates: start: 19970108, end: 20061128
  4. TRUVADA [Suspect]
     Indication: HIV INFECTION
     Dosage: 1UNIT PER DAY
     Route: 048
     Dates: start: 20090904
  5. EPIVIR [Suspect]
     Indication: HIV INFECTION
     Route: 048
     Dates: start: 19970108, end: 20090904

REACTIONS (8)
  - VENTRICULAR HYPERTROPHY [None]
  - MYOCARDIAL INFARCTION [None]
  - CHEST PAIN [None]
  - DYSLIPIDAEMIA [None]
  - VENTRICULAR EXTRASYSTOLES [None]
  - ACUTE CORONARY SYNDROME [None]
  - CARDIAC FAILURE [None]
  - CORONARY ARTERY DISEASE [None]
